FAERS Safety Report 5973817-X (Version None)
Quarter: 2008Q4

REPORT INFORMATION
  Report Type: 
  Country: None (occurrence: None)
  Receive Date: 20081201
  Receipt Date: 20081124
  Transmission Date: 20090506
  Serious: Yes (Other)
  Sender: FDA-Public Use
  Company Number: FR-WYE-G02353408

PATIENT
  Sex: Male
  Weight: 92 kg

DRUGS (8)
  1. TORISEL [Suspect]
     Indication: RENAL CANCER METASTATIC
     Dosage: 25 MG EVERY 1 CYC
     Route: 042
     Dates: start: 20080828, end: 20080905
  2. POLARAMINE [Concomitant]
     Indication: PREMEDICATION
     Dosage: 5 MG
     Route: 042
     Dates: start: 20080905, end: 20080905
  3. ELISOR [Concomitant]
     Dosage: UNKNOWN
     Route: 048
     Dates: start: 20080829
  4. IPERTEN [Concomitant]
     Indication: HYPERTENSION
     Route: 048
     Dates: end: 20081008
  5. TENORMIN [Concomitant]
     Route: 048
  6. PLAVIX [Concomitant]
     Route: 048
  7. RANITIDINE HCL [Concomitant]
     Indication: PREMEDICATION
     Dosage: 50 MG
     Route: 042
     Dates: start: 20080905, end: 20080905
  8. COVERSYL [Suspect]
     Indication: HYPERTENSION
     Route: 048
     Dates: start: 20080827, end: 20081008

REACTIONS (9)
  - CONDITION AGGRAVATED [None]
  - DYSPNOEA [None]
  - ERYTHEMA [None]
  - EYELID OEDEMA [None]
  - FACE OEDEMA [None]
  - FEELING HOT [None]
  - HYPERSENSITIVITY [None]
  - HYPERTENSION [None]
  - OROPHARYNGEAL DISCOMFORT [None]
